FAERS Safety Report 22769529 (Version 2)
Quarter: 2023Q4

REPORT INFORMATION
  Report Type: Spontaneous
  Country: JP (occurrence: JP)
  Receive Date: 20230801
  Receipt Date: 20231120
  Transmission Date: 20240110
  Serious: Yes (Hospitalization)
  Sender: FDA-Public Use
  Company Number: JP-JNJFOC-20230765971

PATIENT
  Age: 37 Year
  Sex: Female
  Weight: 50.5 kg

DRUGS (5)
  1. UPTRAVI [Suspect]
     Active Substance: SELEXIPAG
     Indication: Pulmonary hypertension
     Dosage: 0.4 MG (0.4 MG/12 HOURS)
     Route: 048
     Dates: start: 20230315, end: 20230322
  2. UPTRAVI [Suspect]
     Active Substance: SELEXIPAG
     Dosage: 0.8 MG (0.8 MG/12 HOURS)
     Route: 048
     Dates: start: 20230329, end: 20230405
  3. UPTRAVI [Suspect]
     Active Substance: SELEXIPAG
     Dosage: 1.2 MG (0.6 MG/12 HOURS)
     Route: 048
     Dates: start: 20230329, end: 20230405
  4. UPTRAVI [Suspect]
     Active Substance: SELEXIPAG
     Dosage: 0.8 MG (0.4 MG/12 HOURS)
     Route: 048
     Dates: start: 20230405, end: 20230413
  5. UPTRAVI [Suspect]
     Active Substance: SELEXIPAG
     Dosage: 1.2 MG (0.6 MG/12 HOURS)
     Route: 048
     Dates: start: 20230413

REACTIONS (2)
  - Diarrhoea [Recovered/Resolved]
  - Abdominal pain [Recovered/Resolved]

NARRATIVE: CASE EVENT DATE: 20230405
